FAERS Safety Report 4762219-X (Version None)
Quarter: 2005Q3

REPORT INFORMATION
  Report Type: 
  Country: None (occurrence: None)
  Receive Date: 20050806
  Receipt Date: 20050806
  Transmission Date: 20060218
  Serious: Yes (Other)
  Sender: FDA-Public Use
  Company Number: None

PATIENT
  Sex: Male
  Weight: 98.8842 kg

DRUGS (2)
  1. OXYCODONE LA 80 MG [Suspect]
     Indication: INTERVERTEBRAL DISC DEGENERATION
     Dosage: 3 OR 4 Q8H PO
     Route: 048
     Dates: start: 20020923, end: 20050902
  2. OXYCODONE LA 80 MG [Suspect]
     Indication: POST PROCEDURAL COMPLICATION
     Dosage: 3 OR 4 Q8H PO
     Route: 048
     Dates: start: 20020923, end: 20050902

REACTIONS (4)
  - DIARRHOEA [None]
  - DRUG WITHDRAWAL SYNDROME [None]
  - HYPERHIDROSIS [None]
  - THERAPY NON-RESPONDER [None]
